FAERS Safety Report 20977664 (Version 7)
Quarter: 2022Q4

REPORT INFORMATION
  Report Type: Spontaneous
  Country: ES (occurrence: ES)
  Receive Date: 20220618
  Receipt Date: 20221020
  Transmission Date: 20230113
  Serious: Yes (Hospitalization, Other)
  Sender: FDA-Public Use
  Company Number: ES-MLMSERVICE-20220608-3598173-1

PATIENT
  Age: 13 Year
  Sex: Female

DRUGS (5)
  1. DULOXETINE [Suspect]
     Active Substance: DULOXETINE
     Indication: Product used for unknown indication
     Dosage: 600 MILLIGRAM
     Route: 048
  2. TRAMADOL [Interacting]
     Active Substance: TRAMADOL
     Indication: Product used for unknown indication
     Dosage: UNK
     Route: 048
  3. TRAMADOL [Interacting]
     Active Substance: TRAMADOL
     Indication: Suicidal ideation
  4. MORPHINE [Interacting]
     Active Substance: MORPHINE
     Indication: Product used for unknown indication
     Dosage: 300 MILLIGRAM (DELAYED-RELEASE)
     Route: 048
  5. MORPHINE [Interacting]
     Active Substance: MORPHINE
     Indication: Suicidal ideation

REACTIONS (29)
  - Suicidal ideation [Unknown]
  - Hyperamylasaemia [Recovered/Resolved]
  - Serotonin syndrome [Unknown]
  - Abdominal pain [Recovered/Resolved]
  - Urinary retention [Recovered/Resolved]
  - Troponin I increased [Recovering/Resolving]
  - Miosis [Recovered/Resolved]
  - Intentional overdose [Recovered/Resolved]
  - Suicide attempt [Recovered/Resolved]
  - Headache [Recovered/Resolved]
  - Bradyphrenia [Recovered/Resolved]
  - Respiratory depression [Recovered/Resolved]
  - Somnolence [Recovered/Resolved]
  - Leukocytosis [Recovered/Resolved]
  - Depressed level of consciousness [Not Recovered/Not Resolved]
  - Vomiting [Recovered/Resolved]
  - Overdose [Recovered/Resolved]
  - Loss of consciousness [Not Recovered/Not Resolved]
  - Blood creatine phosphokinase increased [Unknown]
  - Abdominal discomfort [Unknown]
  - Drug interaction [Recovered/Resolved]
  - Toxicity to various agents [Unknown]
  - Bradypnoea [Recovered/Resolved]
  - Cardiac disorder [Unknown]
  - Troponin increased [Recovering/Resolving]
  - Abdominal pain lower [Unknown]
  - Hyporesponsive to stimuli [Recovered/Resolved]
  - Cardiotoxicity [Unknown]
  - Oxygen saturation decreased [Unknown]
